FAERS Safety Report 19416106 (Version 1)
Quarter: 2021Q2

REPORT INFORMATION
  Report Type: Spontaneous
  Country: CH (occurrence: CH)
  Receive Date: 20210614
  Receipt Date: 20210614
  Transmission Date: 20210717
  Serious: Yes (Other)
  Sender: FDA-Public Use
  Company Number: CH-SA-2021SA184466

PATIENT
  Age: 73 Year
  Sex: Male
  Weight: 110 kg

DRUGS (2)
  1. PLAVIX [Suspect]
     Active Substance: CLOPIDOGREL BISULFATE
     Indication: VASCULAR DEVICE USER
     Dosage: UNK
     Route: 048
     Dates: start: 20200401, end: 20210329
  2. PREDNISONE. [Concomitant]
     Active Substance: PREDNISONE
     Indication: ARTHRALGIA
     Dosage: 15 MG, QD
     Route: 048
     Dates: start: 20210327, end: 20210416

REACTIONS (3)
  - Arthralgia [Recovered/Resolved]
  - Seronegative arthritis [Recovered/Resolved]
  - Oedema peripheral [Recovered/Resolved]

NARRATIVE: CASE EVENT DATE: 20201101
